FAERS Safety Report 6510164-1 (Version None)
Quarter: 2009Q4

REPORT INFORMATION
  Report Type: 
  Country: None (occurrence: None)
  Receive Date: 20091222
  Receipt Date: 20091214
  Transmission Date: 20100525
  Serious: Yes (Hospitalization)
  Sender: FDA-Public Use
  Company Number: NZ-KINGPHARMUSA00001-K200901563

PATIENT
  Age: 48 Year
  Sex: Female

DRUGS (6)
  1. LEVOXYL [Suspect]
     Indication: HYPOTHYROIDISM
     Dosage: 200 MCG, QD
  2. LEVOXYL [Suspect]
     Dosage: 250 MCG, QD
  3. LEVOXYL [Suspect]
     Dosage: 100 MCG, QD
  4. PHENYTOIN [Suspect]
     Indication: CONVULSION
     Dosage: 400 MG, QD
  5. PHENYTOIN [Suspect]
     Dosage: 300 MG, QD
  6. CARBAMAZEPINE [Concomitant]
     Indication: CONVULSION
     Dosage: 500 MG, BID

REACTIONS (13)
  - ANTICONVULSANT DRUG LEVEL ABOVE THERAPEUTIC [None]
  - ATAXIA [None]
  - COORDINATION ABNORMAL [None]
  - DIPLOPIA [None]
  - DRUG EFFECT DECREASED [None]
  - DRUG INTERACTION [None]
  - DYSARTHRIA [None]
  - FALL [None]
  - GAIT DISTURBANCE [None]
  - MOVEMENT DISORDER [None]
  - NYSTAGMUS [None]
  - PAST-POINTING [None]
  - VISUAL IMPAIRMENT [None]
